FAERS Safety Report 5926319-0 (Version None)
Quarter: 2008Q4

REPORT INFORMATION
  Report Type: 
  Country: None (occurrence: None)
  Receive Date: 20081017
  Receipt Date: 20081007
  Transmission Date: 20090506
  Serious: Yes (Hospitalization, Disabling)
  Sender: FDA-Public Use
  Company Number: 2008-03474

PATIENT
  Age: 49 Year
  Sex: Female
  Weight: 80 kg

DRUGS (2)
  1. VELCADE [Suspect]
     Indication: MULTIPLE MYELOMA
     Dosage: 2.3 MG, INTRAVENOUS
     Route: 042
     Dates: start: 20080718, end: 20080818
  2. DEXAMETHASONE [Concomitant]

REACTIONS (4)
  - INAPPROPRIATE ANTIDIURETIC HORMONE SECRETION [None]
  - NEUROGENIC BLADDER [None]
  - PNEUMONIA [None]
  - POLYNEUROPATHY [None]
